FAERS Safety Report 26080604 (Version 1)
Quarter: 2025Q4

REPORT INFORMATION
  Report Type: Spontaneous
  Country: US (occurrence: US)
  Receive Date: 20251124
  Receipt Date: 20251124
  Transmission Date: 20260117
  Serious: No
  Sender: LEO PHARM
  Company Number: US-LEO Pharma-384325

PATIENT
  Age: 33 Year
  Sex: Female

DRUGS (1)
  1. ADBRY [Suspect]
     Active Substance: TRALOKINUMAB-LDRM
     Indication: Eczema
     Dosage: TREATMENT IS ONGOING??TITRATION DOSING: 4-150 MG SUBCUTANEOUS SYRINGE?INJECTIONS ON DAY ONE (DOSING
     Route: 058
     Dates: start: 20251024

REACTIONS (4)
  - Dry skin [Unknown]
  - Loss of personal independence in daily activities [Unknown]
  - Pruritus [Unknown]
  - Mood altered [Unknown]
